FAERS Safety Report 8350753-5 (Version None)
Quarter: 2012Q2

REPORT INFORMATION
  Report Type: 
  Country: None (occurrence: None)
  Receive Date: 20120510
  Receipt Date: 20120503
  Transmission Date: 20120825
  Serious: Yes (Congenital Anomaly)
  Sender: FDA-Public Use
  Company Number: US-GLAXOSMITHKLINE-A0976963A

PATIENT
  Sex: Male

DRUGS (1)
  1. PAXIL [Suspect]
     Indication: PANIC ATTACK
     Route: 064
     Dates: start: 19990817

REACTIONS (2)
  - FALLOT'S TETRALOGY [None]
  - FOETAL EXPOSURE DURING PREGNANCY [None]
